FAERS Safety Report 8816740 (Version 2)
Quarter: 2012Q4

REPORT INFORMATION
  Report Type: 
  Country: US (occurrence: None)
  Receive Date: 20121001
  Receipt Date: 20121011
  Transmission Date: 20130627
  Serious: Yes (Other)
  Sender: FDA-Public Use
  Company Number: JPI-P-025273

PATIENT
  Age: 39 Year
  Sex: Female

DRUGS (6)
  1. XYREM [Suspect]
     Indication: NARCOLEPSY
     Dosage: 4.5 gm (2.25 gm, 2 in 1 D), Oral
     Dates: start: 20120911, end: 201209
  2. XYREM [Suspect]
     Indication: NARCOLEPSY
     Dosage: 4.5 gm (2.25 gm, 2 in 1 d), oral
  3. AMPHETAMINE, DEXTROAMPHETAMINE MIXED SALTS [Concomitant]
  4. FLUOXETINE HYDROCHLORIDE [Concomitant]
  5. ORAL CONTRACEPTIVE NOS [Concomitant]
  6. GINGKO BILOBA [Concomitant]

REACTIONS (10)
  - Convulsion [None]
  - Vomiting [None]
  - Loss of consciousness [None]
  - Dyspnoea [None]
  - Dizziness [None]
  - Nausea [None]
  - Fall [None]
  - Eye movement disorder [None]
  - Movement disorder [None]
  - Toxicity to various agents [None]
